FAERS Safety Report 9794493 (Version 1)
Quarter: 2014Q1

REPORT INFORMATION
  Report Type: Spontaneous
  Country: IN (occurrence: IN)
  Receive Date: 20140102
  Receipt Date: 20140102
  Transmission Date: 20141002
  Serious: Yes (Death, Hospitalization, Other)
  Sender: FDA-Public Use
  Company Number: PHHY2013IN153352

PATIENT
  Age: 25 Year
  Sex: Female

DRUGS (1)
  1. FERROUS SULFATE [Suspect]
     Dosage: 200 DF, UNK
     Route: 048

REACTIONS (12)
  - Toxicity to various agents [Fatal]
  - Multi-organ failure [Fatal]
  - Acute hepatic failure [Unknown]
  - Gastrointestinal haemorrhage [Unknown]
  - Abdominal pain [Unknown]
  - Somnolence [Unknown]
  - Blood pressure immeasurable [Unknown]
  - Vomiting [Unknown]
  - Metabolic acidosis [Unknown]
  - Shock [Unknown]
  - Suicidal ideation [Unknown]
  - Intentional overdose [Unknown]
